FAERS Safety Report 17352970 (Version 2)
Quarter: 2020Q1

REPORT INFORMATION
  Report Type: Spontaneous
  Country: FR (occurrence: FR)
  Receive Date: 20200131
  Receipt Date: 20200317
  Transmission Date: 20200409
  Serious: Yes (Life-Threatening, Hospitalization, Other)
  Sender: FDA-Public Use
  Company Number: FR-BRISTOL-MYERS SQUIBB COMPANY-BMS-2020-007310

PATIENT
  Age: 49 Year
  Sex: Female
  Weight: 82 kg

DRUGS (5)
  1. ELIQUIS [Suspect]
     Active Substance: APIXABAN
     Indication: PULMONARY EMBOLISM
     Dosage: 5 MILLIGRAM, BID
     Route: 048
     Dates: start: 2019, end: 20191231
  2. PICLOXYDINE [Concomitant]
     Active Substance: PICLOXYDINE
     Indication: PRODUCT USED FOR UNKNOWN INDICATION
     Dosage: 1 DROP, TID (LEFT EYE)
     Route: 065
  3. BRIMONIDINE;TIMOLOL [Concomitant]
     Indication: PRODUCT USED FOR UNKNOWN INDICATION
     Dosage: 1 DROP, BID (LEFT EYE)
     Route: 065
  4. FERROUS SULFATE. [Concomitant]
     Active Substance: FERROUS SULFATE
     Indication: PRODUCT USED FOR UNKNOWN INDICATION
     Dosage: 80 MILLIGRAM, DAILY
     Route: 065
  5. ELIQUIS [Suspect]
     Active Substance: APIXABAN
     Indication: DEEP VEIN THROMBOSIS
     Dosage: 10 MILLIGRAM, BID
     Route: 048
     Dates: start: 20190722

REACTIONS (3)
  - Intracranial pressure increased [Recovering/Resolving]
  - Lower respiratory tract infection bacterial [Unknown]
  - Cerebral venous thrombosis [Recovering/Resolving]

NARRATIVE: CASE EVENT DATE: 20191231
